FAERS Safety Report 20240168 (Version 1)
Quarter: 2021Q4

REPORT INFORMATION
  Report Type: Report from Study
  Country: US (occurrence: US)
  Receive Date: 20211228
  Receipt Date: 20211228
  Transmission Date: 20220304
  Serious: Yes (Hospitalization, Other)
  Sender: FDA-Public Use
  Company Number: US-EXELIXIS-CABO-21045525

PATIENT
  Age: 65 Year
  Sex: Male

DRUGS (21)
  1. CABOMETYX [Suspect]
     Active Substance: CABOZANTINIB S-MALATE
     Indication: Malignant connective tissue neoplasm
     Dosage: 60 MG, QD
     Dates: start: 20211001, end: 202110
  2. CABOMETYX [Suspect]
     Active Substance: CABOZANTINIB S-MALATE
     Indication: Soft tissue sarcoma
     Dosage: 60 MG, QD
     Dates: start: 202110, end: 20211110
  3. CABOMETYX [Suspect]
     Active Substance: CABOZANTINIB S-MALATE
     Dosage: 60 MG, QD
     Dates: start: 20211127, end: 20211204
  4. CABOMETYX [Suspect]
     Active Substance: CABOZANTINIB S-MALATE
     Dosage: 60 MG, QD
     Dates: start: 20211210
  5. CABOMETYX [Suspect]
     Active Substance: CABOZANTINIB S-MALATE
     Dosage: 40 MG, QD
     Dates: start: 20211218
  6. VITAMINS [Concomitant]
     Active Substance: VITAMINS
  7. COMPAZINE [Concomitant]
     Active Substance: PROCHLORPERAZINE MALEATE
  8. SENNA [Concomitant]
     Active Substance: SENNA LEAF\SENNOSIDES\SENNOSIDES A AND B
  9. TORSEMIDE [Concomitant]
     Active Substance: TORSEMIDE
  10. FLUTICASONE PROPIONATE [Concomitant]
     Active Substance: FLUTICASONE PROPIONATE
  11. GABAPENTIN [Concomitant]
     Active Substance: GABAPENTIN
  12. KLOR-CON [Concomitant]
     Active Substance: POTASSIUM CHLORIDE
  13. LEVOTHYROXINE [Concomitant]
     Active Substance: LEVOTHYROXINE
  14. MORPHINE SULFATE [Concomitant]
     Active Substance: MORPHINE SULFATE
  15. BUPROPION [Concomitant]
     Active Substance: BUPROPION
  16. CALCIUM CARBONATE\VITAMIN D [Concomitant]
     Active Substance: CALCIUM CARBONATE\VITAMIN D
  17. CETIRIZINE HYDROCHLORIDE [Concomitant]
     Active Substance: CETIRIZINE HYDROCHLORIDE
  18. CITALOPRAM [Concomitant]
     Active Substance: CITALOPRAM HYDROBROMIDE
  19. DOCUSATE SODIUM [Concomitant]
     Active Substance: DOCUSATE SODIUM
  20. FLOMAX [Concomitant]
     Active Substance: TAMSULOSIN HYDROCHLORIDE
  21. OXYCODONE [Concomitant]
     Active Substance: OXYCODONE

REACTIONS (22)
  - Bone neoplasm [Unknown]
  - Sneezing [Unknown]
  - Cough [Unknown]
  - Oesophageal pain [Recovering/Resolving]
  - Skin disorder [Not Recovered/Not Resolved]
  - Bone pain [Unknown]
  - Asthenia [Not Recovered/Not Resolved]
  - Gingival disorder [Recovered/Resolved]
  - Bone disorder [Unknown]
  - Pruritus [Recovering/Resolving]
  - Pain [Unknown]
  - Constipation [Unknown]
  - Taste disorder [Recovered/Resolved]
  - Fatigue [Recovering/Resolving]
  - Decreased appetite [Recovering/Resolving]
  - Weight decreased [Recovered/Resolved]
  - Dry skin [Unknown]
  - Hypoaesthesia [Not Recovered/Not Resolved]
  - Back pain [Unknown]
  - Metastatic neoplasm [Not Recovered/Not Resolved]
  - Product dose omission issue [Unknown]
  - Off label use [Unknown]

NARRATIVE: CASE EVENT DATE: 20211001
